FAERS Safety Report 16344158 (Version 2)
Quarter: 2019Q2

REPORT INFORMATION
  Report Type: Report from Study
  Country: ES (occurrence: ES)
  Receive Date: 20190522
  Receipt Date: 20190531
  Transmission Date: 20190711
  Serious: Yes (Death, Life-Threatening)
  Sender: FDA-Public Use
  Company Number: ES-PFIZER INC-2019216576

PATIENT
  Age: 14 Year
  Sex: Male

DRUGS (12)
  1. CYTARABINE. [Suspect]
     Active Substance: CYTARABINE
     Indication: ACUTE LYMPHOCYTIC LEUKAEMIA
     Dosage: 30 MG, UNK
     Dates: start: 20190424
  2. MORFINA [MORPHINE] [Concomitant]
     Indication: BONE PAIN
     Dosage: 250 MG, DAILY (QD)
     Route: 042
     Dates: start: 20190319, end: 20190525
  3. VINCRISTINE [Suspect]
     Active Substance: VINCRISTINE
     Indication: ACUTE LYMPHOCYTIC LEUKAEMIA
     Dosage: UNK
     Dates: start: 20190424
  4. ACICLOVIR [Concomitant]
     Active Substance: ACYCLOVIR
     Indication: INFECTION PROPHYLAXIS
     Dosage: 400 MG, 3X/DAY (Q8H)
     Route: 048
     Dates: start: 20190319, end: 20190522
  5. INOTUZUMAB OZOGAMICIN [Suspect]
     Active Substance: INOTUZUMAB OZOGAMICIN
     Indication: ACUTE LYMPHOCYTIC LEUKAEMIA
     Dosage: 0.89 MG, UNK
     Dates: start: 20190319, end: 20190403
  6. METHOTREXATE SODIUM. [Suspect]
     Active Substance: METHOTREXATE SODIUM
     Indication: ACUTE LYMPHOCYTIC LEUKAEMIA
     Dosage: 8.3 G, UNK
     Dates: start: 20190424
  7. METHYLPREDNISOLONE SODIUM SUCCINATE. [Suspect]
     Active Substance: METHYLPREDNISOLONE SODIUM SUCCINATE
     Indication: ACUTE LYMPHOCYTIC LEUKAEMIA
     Dosage: 40 MG, UNK
     Dates: start: 20190319
  8. CYCLOPHOSPHAMIDE. [Suspect]
     Active Substance: CYCLOPHOSPHAMIDE
     Indication: ACUTE LYMPHOCYTIC LEUKAEMIA
     Dosage: 400 MG/M2, UNK
     Dates: start: 20190514, end: 20190514
  9. TEICOPLANINA [Concomitant]
     Active Substance: TEICOPLANIN
     Indication: COLITIS
     Dosage: 400 MG, DAILY (QD)
     Route: 042
     Dates: start: 20190515, end: 20190520
  10. METRONIDAZOL [METRONIDAZOLE] [Concomitant]
     Active Substance: METRONIDAZOLE
     Indication: COLITIS
     Dosage: 500 MG, 4X/DAY (Q6H)
     Route: 048
     Dates: start: 20190510, end: 20190517
  11. MEROPENEM. [Concomitant]
     Active Substance: MEROPENEM
     Indication: COLITIS
     Dosage: 2 G, 3X/DAY (Q8H)
     Route: 042
     Dates: start: 20190515, end: 20190524
  12. AMFO B [Concomitant]
     Indication: INFECTION PROPHYLAXIS
     Dosage: 180 MG, DAILY (QD)
     Route: 042
     Dates: start: 20190319, end: 20190522

REACTIONS (1)
  - Venoocclusive liver disease [Fatal]

NARRATIVE: CASE EVENT DATE: 20190517
